FAERS Safety Report 17874951 (Version 1)
Quarter: 2020Q2

REPORT INFORMATION
  Report Type: Spontaneous
  Country: US (occurrence: US)
  Receive Date: 20200608
  Receipt Date: 20200608
  Transmission Date: 20200714
  Serious: No
  Sender: FDA-Public Use
  Company Number: None

PATIENT
  Sex: Female

DRUGS (11)
  1. VITAMIN D3 [Concomitant]
     Active Substance: CHOLECALCIFEROL
  2. TYLENOL [Concomitant]
     Active Substance: ACETAMINOPHEN
  3. LIPITOR [Concomitant]
     Active Substance: ATORVASTATIN CALCIUM
  4. TRAMADOL. [Concomitant]
     Active Substance: TRAMADOL
  5. AMBRISENTAN 10MG TAB [Suspect]
     Active Substance: AMBRISENTAN
     Indication: PULMONARY ARTERIAL HYPERTENSION
     Route: 048
  6. ADCIRCA [Concomitant]
     Active Substance: TADALAFIL
  7. ALDACTONE [Concomitant]
     Active Substance: SPIRONOLACTONE
  8. KEPPRA [Concomitant]
     Active Substance: LEVETIRACETAM
  9. PSTASSIUM [Concomitant]
  10. LETAIRIS [Concomitant]
     Active Substance: AMBRISENTAN
  11. FUROSEMIDE. [Concomitant]
     Active Substance: FUROSEMIDE

REACTIONS (1)
  - Pain in jaw [None]
